FAERS Safety Report 5670952-0 (Version None)
Quarter: 2008Q1

REPORT INFORMATION
  Report Type: 
  Country: None (occurrence: None)
  Receive Date: 20080313
  Receipt Date: 20080228
  Transmission Date: 20080703
  Serious: Yes (Hospitalization)
  Sender: FDA-Public Use
  Company Number: 024421

PATIENT
  Age: 30 Year
  Sex: Female

DRUGS (14)
  1. SERTRALINE HCL [Suspect]
     Indication: DEPRESSION
     Dosage: 100 - 150 GM,
  2. OXYBUTYNIN CHLORIDE [Suspect]
     Dosage: 5 MG, BID,
  3. TRAZODONE HCL [Suspect]
     Dosage: 100 MG, QHS,
  4. BACLOFEN [Suspect]
     Dosage: 40 MG, QID,
  5. MORPHINE [Suspect]
     Indication: PAIN
     Dosage: 360 MG, TID,
  6. OXYCODONE HCL [Suspect]
     Indication: PAIN
     Dosage: 10 MG PRN UP TO 100 MG,
  7. PREMARIN [Suspect]
     Dosage: 0.6 MG,
  8. ALCOHOL(ETHANOL) [Suspect]
  9. COCAINE(COCAINE) [Suspect]
  10. MARIJUANA(CANNABIS) [Suspect]
  11. CLONIDINE [Concomitant]
  12. DIAZEPAM [Concomitant]
  13. FLUTICASONE PROPIONATE [Concomitant]
  14. METAXALONE (METAXALONE) [Concomitant]

REACTIONS (27)
  - ABDOMINAL PAIN [None]
  - ACCIDENTAL OVERDOSE [None]
  - ADJUSTMENT DISORDER WITH DEPRESSED MOOD [None]
  - CARPAL TUNNEL SYNDROME [None]
  - DEPRESSED MOOD [None]
  - DRUG ABUSER [None]
  - DYSPHORIA [None]
  - EMOTIONAL DISTRESS [None]
  - INJURY [None]
  - MUSCLE SPASMS [None]
  - MUSCLE SPASTICITY [None]
  - OSTEOMYELITIS [None]
  - OVERDOSE [None]
  - PAIN [None]
  - PAIN IN EXTREMITY [None]
  - PARAPLEGIA [None]
  - POISONING [None]
  - REFUSAL OF TREATMENT BY PATIENT [None]
  - ROTATOR CUFF SYNDROME [None]
  - SELF INJURIOUS BEHAVIOUR [None]
  - SOMNOLENCE [None]
  - SPINAL CORD INJURY THORACIC [None]
  - SUBSTANCE ABUSE [None]
  - SUICIDAL IDEATION [None]
  - SUICIDE ATTEMPT [None]
  - SURGERY [None]
  - VICTIM OF CRIME [None]
